FAERS Safety Report 6948955-5 (Version None)
Quarter: 2010Q3

REPORT INFORMATION
  Report Type: 
  Country: None (occurrence: None)
  Receive Date: 20100828
  Receipt Date: 20091210
  Transmission Date: 20110219
  Serious: No
  Sender: FDA-Public Use
  Company Number: US-ABBOTT-09P-163-0610419-00

PATIENT
  Sex: Female
  Weight: 65.83 kg

DRUGS (10)
  1. NIASPAN [Suspect]
     Indication: CORONARY ARTERY DISEASE
     Dates: start: 20091105, end: 20091201
  2. NIASPAN [Suspect]
     Indication: HIGH DENSITY LIPOPROTEIN DECREASED
  3. ASPIRIN [Concomitant]
     Indication: CORONARY ARTERY DISEASE
  4. ZOCOR [Concomitant]
     Indication: HIGH DENSITY LIPOPROTEIN DECREASED
  5. IMDUR [Concomitant]
     Indication: ANGINA PECTORIS
  6. PLAVIX [Concomitant]
     Indication: CORONARY ARTERIAL STENT INSERTION
  7. HYDROCHLORATHIAZIDE [Concomitant]
     Indication: HYPERTENSION
  8. HORMONE REPLACEMENT [Concomitant]
     Indication: HORMONE REPLACEMENT THERAPY
  9. NITROLINQUAL SPRAY [Concomitant]
     Indication: ANGINA PECTORIS
  10. MULTIPLE VITAMINS [Concomitant]
     Indication: VITAMIN SUPPLEMENTATION

REACTIONS (2)
  - ARTHROPATHY [None]
  - BLOOD GLUCOSE INCREASED [None]
